FAERS Safety Report 11402814 (Version 1)
Quarter: 2015Q3

REPORT INFORMATION
  Report Type: Spontaneous
  Country: US (occurrence: US)
  Receive Date: 20150821
  Receipt Date: 20150821
  Transmission Date: 20151125
  Serious: No
  Sender: FDA-Public Use
  Company Number: US-ROCHE-1292279

PATIENT
  Sex: Female

DRUGS (3)
  1. RIBASPHERE [Suspect]
     Active Substance: RIBAVIRIN
     Indication: CHRONIC HEPATITIS C
     Dosage: IN DIVIDED DOSES
     Route: 048
     Dates: start: 20131018
  2. RIBASPHERE [Suspect]
     Active Substance: RIBAVIRIN
     Route: 048
     Dates: start: 20131206
  3. PEGASYS [Suspect]
     Active Substance: PEGINTERFERON ALFA-2A
     Indication: CHRONIC HEPATITIS C
     Route: 058
     Dates: start: 20131018

REACTIONS (17)
  - Oral herpes [Unknown]
  - Flatulence [Unknown]
  - Headache [Unknown]
  - Erythema [Unknown]
  - Dyspnoea [Unknown]
  - Skin disorder [Unknown]
  - Chills [Unknown]
  - Pruritus [Unknown]
  - Pyrexia [Unknown]
  - Insomnia [Unknown]
  - Nausea [Unknown]
  - Red blood cell count decreased [Unknown]
  - Sputum discoloured [Unknown]
  - Abdominal pain [Unknown]
  - Constipation [Unknown]
  - Respiratory tract congestion [Unknown]
  - Red blood cell count increased [Unknown]
